FAERS Safety Report 9999404 (Version 1)
Quarter: 2014Q1

REPORT INFORMATION
  Report Type: Spontaneous
  Country: US (occurrence: US)
  Receive Date: 20140312
  Receipt Date: 20140312
  Transmission Date: 20141002
  Serious: No
  Sender: FDA-Public Use
  Company Number: US-009507513-1403USA004907

PATIENT
  Age: 79 Year
  Sex: Male

DRUGS (7)
  1. DULERA [Suspect]
     Indication: CHRONIC OBSTRUCTIVE PULMONARY DISEASE
     Dosage: 1 DF, QD
     Route: 055
     Dates: start: 20131224
  2. SPIRIVA [Concomitant]
  3. HYDROCODONE [Concomitant]
  4. VICODIN [Concomitant]
  5. IBUPROFEN [Concomitant]
  6. GASTROINTESTINAL PREPARATIONS (UNSPECIFIED) [Concomitant]
  7. MORPHINE [Concomitant]

REACTIONS (4)
  - Oral candidiasis [Recovered/Resolved]
  - Drug dose omission [Unknown]
  - Underdose [Unknown]
  - Product quality issue [Unknown]
